FAERS Safety Report 5648745-X (Version None)
Quarter: 2008Q1

REPORT INFORMATION
  Report Type: 
  Country: None (occurrence: None)
  Receive Date: 20080304
  Receipt Date: 20080220
  Transmission Date: 20080703
  Serious: Yes (Hospitalization)
  Sender: FDA-Public Use
  Company Number: BE-AMGEN-UK261623

PATIENT
  Sex: Male

DRUGS (7)
  1. PANITUMUMAB [Suspect]
     Indication: SQUAMOUS CELL CARCINOMA
     Route: 042
     Dates: start: 20071227
  2. ZOCOR [Concomitant]
     Route: 048
  3. BISOPROLOL FUMARATE [Concomitant]
     Route: 048
  4. TRAMADOL HCL [Concomitant]
     Route: 048
     Dates: start: 20080116, end: 20080117
  5. DAFALGAN [Concomitant]
     Route: 048
     Dates: start: 20080116, end: 20080117
  6. DIOVAN [Concomitant]
     Route: 048
     Dates: start: 20080116
  7. NEXIUM [Concomitant]
     Route: 048
     Dates: start: 20080116

REACTIONS (1)
  - WEIGHT DECREASED [None]
